FAERS Safety Report 5414891-9 (Version None)
Quarter: 2007Q3

REPORT INFORMATION
  Report Type: 
  Country: None (occurrence: None)
  Receive Date: 20070813
  Receipt Date: 20070808
  Transmission Date: 20080115
  Serious: Yes (Death, Life-Threatening)
  Sender: FDA-Public Use
  Company Number: 2007SP013780

PATIENT
  Age: 78 Year
  Sex: Female
  Weight: 68 kg

DRUGS (5)
  1. TEMODAL [Suspect]
     Indication: GLIOBLASTOMA
     Dosage: 125 MG/M2; QOW;
     Dates: start: 20070319, end: 20070518
  2. VALPROATE SODIUM [Concomitant]
  3. OMEPRAZOLE [Concomitant]
  4. DEXAMETHASONE 0.5MG TAB [Concomitant]
  5. FRUSEMIDE [Concomitant]

REACTIONS (7)
  - BLOOD POTASSIUM DECREASED [None]
  - DISTURBANCE IN ATTENTION [None]
  - LEUKOPENIA [None]
  - PNEUMONIA PNEUMOCOCCAL [None]
  - PNEUMONIA STREPTOCOCCAL [None]
  - SEPSIS [None]
  - URINARY TRACT INFECTION [None]
